FAERS Safety Report 7682359-5 (Version None)
Quarter: 2011Q3

REPORT INFORMATION
  Report Type: 
  Country: None (occurrence: None)
  Receive Date: 20110815
  Receipt Date: 20110806
  Transmission Date: 20111222
  Serious: Yes (Other)
  Sender: FDA-Public Use
  Company Number: US-BRISTOL-MYERS SQUIBB COMPANY-15952278

PATIENT
  Age: 85 Year
  Sex: Male
  Weight: 81 kg

DRUGS (2)
  1. GM-CSF [Suspect]
     Indication: MALIGNANT MELANOMA
     Dosage: CYCL 1-4 Q 21 DAYS. 250MCG PER DAY FOR 14 DAYS. CYCL 5+ Q 12 WKS. LAST ADMINISTERED DT IS 26JUL2011
     Route: 058
     Dates: start: 20110518
  2. IPILIMUMAB [Suspect]
     Indication: MALIGNANT MELANOMA
     Dosage: LAST ADMINISTERED DT IS 13JUL2011; DOSE=10 MG/KG
     Route: 042
     Dates: start: 20110518

REACTIONS (2)
  - LIPASE INCREASED [None]
  - BLOOD AMYLASE INCREASED [None]
